FAERS Safety Report 5740758-2 (Version None)
Quarter: 2008Q2

REPORT INFORMATION
  Report Type: 
  Country: None (occurrence: None)
  Receive Date: 20080516
  Receipt Date: 20080508
  Transmission Date: 20081010
  Serious: Yes (Disabling, Other)
  Sender: FDA-Public Use
  Company Number: AU-PFIZER INC-2008035945

PATIENT
  Sex: Male

DRUGS (2)
  1. CHANTIX [Suspect]
     Indication: SMOKING CESSATION THERAPY
     Route: 048
     Dates: start: 20080219, end: 20080401
  2. VIAGRA [Suspect]

REACTIONS (7)
  - ABNORMAL BEHAVIOUR [None]
  - DEPRESSED MOOD [None]
  - DISORIENTATION [None]
  - FEELING ABNORMAL [None]
  - LEGAL PROBLEM [None]
  - LIBIDO INCREASED [None]
  - MOOD SWINGS [None]
